FAERS Safety Report 10881501 (Version 2)
Quarter: 2015Q1

REPORT INFORMATION
  Report Type: Spontaneous
  Country: US (occurrence: US)
  Receive Date: 20150303
  Receipt Date: 20150317
  Transmission Date: 20150721
  Serious: No
  Sender: FDA-Public Use
  Company Number: US-BAYER-2015-031795

PATIENT
  Age: 69 Year
  Sex: Female

DRUGS (2)
  1. BETASERON [Suspect]
     Active Substance: INTERFERON BETA-1B
     Indication: MULTIPLE SCLEROSIS
     Dosage: 0.25 MG, QOD
  2. FORTEO [Suspect]
     Active Substance: TERIPARATIDE

REACTIONS (2)
  - Injection site haemorrhage [None]
  - Rash [Recovered/Resolved]
